FAERS Safety Report 7997205-X (Version None)
Quarter: 2011Q4

REPORT INFORMATION
  Report Type: 
  Country: None (occurrence: None)
  Receive Date: 20111221
  Receipt Date: 20111207
  Transmission Date: 20120403
  Serious: Yes (Hospitalization, Other)
  Sender: FDA-Public Use
  Company Number: PHHY2011BR097692

PATIENT
  Sex: Male

DRUGS (7)
  1. DIGOXIN [Concomitant]
  2. CARVEDILOL [Concomitant]
  3. WARFARIN SODIUM [Concomitant]
     Indication: HYPERCOAGULATION
  4. SANDOSTATIN LAR [Suspect]
     Indication: BLOOD GROWTH HORMONE INCREASED
  5. AMIODARONE HCL [Concomitant]
  6. LOSARTAN POTASSIUM [Concomitant]
  7. ALDACTONE [Concomitant]

REACTIONS (4)
  - FATIGUE [None]
  - DYSPNOEA [None]
  - MALAISE [None]
  - CARDIOMEGALY [None]
